FAERS Safety Report 7821309-5 (Version None)
Quarter: 2011Q4

REPORT INFORMATION
  Report Type: 
  Country: None (occurrence: None)
  Receive Date: 20111018
  Receipt Date: 20110817
  Transmission Date: 20120403
  Serious: No
  Sender: FDA-Public Use
  Company Number: US-ASTRAZENECA-2011SE05849

PATIENT
  Age: 60 Year
  Sex: Female
  Weight: 54.4 kg

DRUGS (3)
  1. SYMBICORT [Suspect]
     Indication: ASTHMA
     Dosage: 80/40.5, 2  PUFF TWICE A DAY/BID
     Route: 055
     Dates: start: 20090101
  2. SYMBICORT [Suspect]
     Dosage: 80/40.5, 1 PUFF TWICE A DAY/BID
     Route: 055
     Dates: start: 20090101
  3. NASACORT [Suspect]
     Route: 045

REACTIONS (4)
  - DRUG DOSE OMISSION [None]
  - OFF LABEL USE [None]
  - NASAL DISORDER [None]
  - HEADACHE [None]
